FAERS Safety Report 23593179 (Version 1)
Quarter: 2024Q1

REPORT INFORMATION
  Report Type: Spontaneous
  Country: US (occurrence: US)
  Receive Date: 20240304
  Receipt Date: 20240304
  Transmission Date: 20240410
  Serious: No
  Sender: FDA-Public Use
  Company Number: US-SA-SAC20240227001356

PATIENT
  Sex: Female

DRUGS (3)
  1. DUPIXENT [Suspect]
     Active Substance: DUPILUMAB
     Indication: Asthma
     Dosage: 300 MG, QOW
     Route: 058
     Dates: start: 20210528
  2. SYNTHROID [Concomitant]
     Active Substance: LEVOTHYROXINE SODIUM
     Dosage: UNK
  3. AUVI-Q [Concomitant]
     Active Substance: EPINEPHRINE
     Dosage: UNK

REACTIONS (3)
  - Impaired quality of life [Not Recovered/Not Resolved]
  - Oral herpes [Not Recovered/Not Resolved]
  - Asthma [Not Recovered/Not Resolved]
